FAERS Safety Report 6299584-0 (Version None)
Quarter: 2009Q3

REPORT INFORMATION
  Report Type: 
  Country: None (occurrence: None)
  Receive Date: 20090806
  Receipt Date: 20090730
  Transmission Date: 20100115
  Serious: Yes (Other)
  Sender: FDA-Public Use
  Company Number: JP-ABBOTT-09P-087-0588590-00

PATIENT
  Age: 58 Year
  Sex: Female

DRUGS (3)
  1. CLARITH TAB [Suspect]
     Indication: DRUG USE FOR UNKNOWN INDICATION
     Dates: start: 20070301, end: 20070301
  2. PABURON S TAB [Suspect]
     Indication: DRUG USE FOR UNKNOWN INDICATION
     Dosage: OTC COLD PREPARATION
     Dates: start: 20070201, end: 20070201
  3. PABURON S TAB [Suspect]
     Dosage: OTC COLD PREPARATION

REACTIONS (1)
  - INTERSTITIAL LUNG DISEASE [None]
